FAERS Safety Report 18794412 (Version 1)
Quarter: 2021Q1

REPORT INFORMATION
  Report Type: Report from Study
  Country: FR (occurrence: FR)
  Receive Date: 20210127
  Receipt Date: 20210127
  Transmission Date: 20210419
  Serious: Yes (Other)
  Sender: FDA-Public Use
  Company Number: FR-PFIZER INC-2021067745

PATIENT
  Age: 68 Year
  Sex: Male
  Weight: 62 kg

DRUGS (4)
  1. AVELUMAB [Suspect]
     Active Substance: AVELUMAB
     Indication: GASTROINTESTINAL CARCINOMA
     Dosage: 620 MG
     Route: 042
     Dates: start: 20191121, end: 20191121
  2. LYRICA [Suspect]
     Active Substance: PREGABALIN
     Dosage: 50 MG, 1X/DAY
     Route: 048
     Dates: start: 20191128, end: 20191204
  3. REGORAFENIB. [Suspect]
     Active Substance: REGORAFENIB
     Dosage: 160 UG
     Route: 048
     Dates: start: 20191121, end: 20191121
  4. REGORAFENIB. [Suspect]
     Active Substance: REGORAFENIB
     Indication: GASTROINTESTINAL CARCINOMA
     Dosage: 160 UG
     Route: 048
     Dates: start: 20191106

REACTIONS (1)
  - Neutropenia [Recovered/Resolved]

NARRATIVE: CASE EVENT DATE: 20191203
